FAERS Safety Report 10200690 (Version 3)
Quarter: 2014Q2

REPORT INFORMATION
  Report Type: Report from Study
  Country: IT (occurrence: IT)
  Receive Date: 20140528
  Receipt Date: 20140612
  Transmission Date: 20141212
  Serious: Yes (Death, Other)
  Sender: FDA-Public Use
  Company Number: IT-ROCHE-1408812

PATIENT
  Age: 50 Year
  Sex: Male

DRUGS (1)
  1. ZELBORAF [Suspect]
     Indication: METASTATIC MALIGNANT MELANOMA
     Route: 065
     Dates: start: 201308, end: 201310

REACTIONS (3)
  - Thrombocytopenia [Unknown]
  - Hepatic function abnormal [Unknown]
  - Disease progression [Fatal]
